FAERS Safety Report 14695259 (Version 2)
Quarter: 2018Q2

REPORT INFORMATION
  Report Type: Report from Study
  Country: US (occurrence: US)
  Receive Date: 20180329
  Receipt Date: 20180417
  Transmission Date: 20180711
  Serious: Yes (Hospitalization)
  Sender: FDA-Public Use
  Company Number: US-ACTELION-A-US2018-169638

PATIENT
  Age: 67 Year
  Sex: Female
  Weight: 72.11 kg

DRUGS (2)
  1. COUMADIN [Concomitant]
     Active Substance: WARFARIN SODIUM
  2. UPTRAVI [Suspect]
     Active Substance: SELEXIPAG
     Indication: PULMONARY ARTERIAL HYPERTENSION
     Dosage: 800 MCG, BID
     Route: 048
     Dates: start: 201803

REACTIONS (7)
  - Gastrointestinal disorder [Unknown]
  - Blood pressure increased [Recovered/Resolved]
  - Condition aggravated [Unknown]
  - Pulmonary arterial hypertension [Unknown]
  - Fluid retention [Recovering/Resolving]
  - Swelling [Unknown]
  - Dyspnoea [Unknown]
